FAERS Safety Report 16840778 (Version 1)
Quarter: 2019Q3

REPORT INFORMATION
  Report Type: Spontaneous
  Country: US (occurrence: US)
  Receive Date: 20190923
  Receipt Date: 20190923
  Transmission Date: 20191005
  Serious: Yes (Other)
  Sender: FDA-Public Use
  Company Number: US-TEVA-2019-US-1112206

PATIENT
  Age: 72 Year
  Sex: Male

DRUGS (1)
  1. IFOSFAMIDE. [Suspect]
     Active Substance: IFOSFAMIDE
     Indication: CHONDROSARCOMA METASTATIC
     Route: 065

REACTIONS (5)
  - Tumour haemorrhage [Not Recovered/Not Resolved]
  - Agitation [Not Recovered/Not Resolved]
  - Clumsiness [Not Recovered/Not Resolved]
  - Toxicity to various agents [Unknown]
  - Procedural haemorrhage [Not Recovered/Not Resolved]
